FAERS Safety Report 26087981 (Version 1)
Quarter: 2025Q4

REPORT INFORMATION
  Report Type: Spontaneous
  Country: US (occurrence: None)
  Receive Date: 20251125
  Receipt Date: 20251125
  Transmission Date: 20260117
  Serious: Yes (Other)
  Sender: FDA-CTU
  Company Number: None

PATIENT
  Age: 72 Year
  Sex: Female

DRUGS (2)
  1. EVENITY [Suspect]
     Active Substance: ROMOSOZUMAB-AQQG
     Dosage: UNKNOWN
  2. PROLIA [Suspect]
     Active Substance: DENOSUMAB

REACTIONS (4)
  - Pain [None]
  - Hypertension [None]
  - Urticaria [None]
  - Femur fracture [None]
